FAERS Safety Report 14323169 (Version 1)
Quarter: 2017Q4

REPORT INFORMATION
  Report Type: Spontaneous
  Country: US (occurrence: US)
  Receive Date: 20171226
  Receipt Date: 20171226
  Transmission Date: 20180321
  Serious: No
  Sender: FDA-Public Use
  Company Number: US-B.I. PHARMACEUTICALS,INC./RIDGEFIELD-2017-BI-067574

PATIENT
  Age: 65 Year
  Sex: Male

DRUGS (1)
  1. COMBIVENT [Suspect]
     Active Substance: ALBUTEROL SULFATE\IPRATROPIUM BROMIDE
     Indication: EMPHYSEMA
     Dosage: 1 INHALATION   FORM STRENGTH: 20 MCG / 100 MCG         ADMINISTRATION CORRECT? YES
     Route: 055
     Dates: start: 2015

REACTIONS (5)
  - Nasal congestion [Unknown]
  - Nasopharyngitis [Unknown]
  - Dyspnoea [Unknown]
  - Micturition frequency decreased [Unknown]
  - Decreased appetite [Unknown]

NARRATIVE: CASE EVENT DATE: 20171209
